FAERS Safety Report 24860172 (Version 1)
Quarter: 2025Q1

REPORT INFORMATION
  Report Type: Report from Study
  Country: AU (occurrence: AU)
  Receive Date: 20250120
  Receipt Date: 20250120
  Transmission Date: 20250408
  Serious: Yes (Other)
  Sender: ABBVIE
  Company Number: AU-ABBVIE-6073204

PATIENT
  Age: 75 Year
  Sex: Male

DRUGS (3)
  1. LEUPROLIDE ACETATE [Suspect]
     Active Substance: LEUPROLIDE ACETATE
     Indication: Prostate cancer
     Route: 030
  2. MICARDIS [Concomitant]
     Active Substance: TELMISARTAN
     Indication: Hypertension
  3. MOBIC [Concomitant]
     Active Substance: MELOXICAM
     Indication: Hypertension

REACTIONS (4)
  - Memory impairment [Recovering/Resolving]
  - Palpitations [Recovering/Resolving]
  - Fatigue [Recovering/Resolving]
  - Night sweats [Recovering/Resolving]

NARRATIVE: CASE EVENT DATE: 20241220
